FAERS Safety Report 12872087 (Version 2)
Quarter: 2016Q4

REPORT INFORMATION
  Report Type: Spontaneous
  Country: US (occurrence: US)
  Receive Date: 20161021
  Receipt Date: 20161103
  Transmission Date: 20170207
  Serious: Yes (Other)
  Sender: FDA-Public Use
  Company Number: US-PURDUE-USA-2016-0132887

PATIENT
  Age: 55 Year
  Sex: Female

DRUGS (6)
  1. OXYCONTIN [Suspect]
     Active Substance: OXYCODONE HYDROCHLORIDE
     Dosage: 160 MG, PM
     Route: 048
     Dates: start: 20160816, end: 201610
  2. OXYCONTIN [Suspect]
     Active Substance: OXYCODONE HYDROCHLORIDE
     Dosage: UNK
     Route: 048
     Dates: start: 2009
  3. OXYCONTIN [Suspect]
     Active Substance: OXYCODONE HYDROCHLORIDE
     Indication: OSTEOARTHRITIS
     Dosage: 240 MG, AM
     Route: 048
     Dates: start: 20160816, end: 201610
  4. OXYCONTIN [Suspect]
     Active Substance: OXYCODONE HYDROCHLORIDE
     Dosage: (240 MG IN AM AND 160 MG IN PM) 400 MG, DAILY
     Route: 048
  5. OXYCONTIN [Suspect]
     Active Substance: OXYCODONE HYDROCHLORIDE
     Indication: LUNG NEOPLASM MALIGNANT
     Dosage: 80 MG, DAILY
     Route: 048
     Dates: start: 201610
  6. OXYCONTIN [Suspect]
     Active Substance: OXYCODONE HYDROCHLORIDE
     Dosage: 240 MG, HS
     Route: 048
     Dates: start: 20160816, end: 201610

REACTIONS (14)
  - Gait disturbance [Unknown]
  - Wrong technique in product usage process [Unknown]
  - Crying [Unknown]
  - Drug effect decreased [Unknown]
  - Nasopharyngitis [Not Recovered/Not Resolved]
  - Unevaluable event [Unknown]
  - Knee arthroplasty [Unknown]
  - Malaise [Not Recovered/Not Resolved]
  - Coccydynia [Unknown]
  - Insomnia [Unknown]
  - Pain [Unknown]
  - Off label use [Unknown]
  - Muscle spasms [Unknown]
  - Bone pain [Unknown]

NARRATIVE: CASE EVENT DATE: 201511
